FAERS Safety Report 9347634 (Version 1)
Quarter: 2013Q2

REPORT INFORMATION
  Report Type: Spontaneous
  Country: US (occurrence: US)
  Receive Date: 20130614
  Receipt Date: 20130614
  Transmission Date: 20140414
  Serious: No
  Sender: FDA-Public Use
  Company Number: US-BIOGENIDEC-2013BI052187

PATIENT
  Sex: Female

DRUGS (2)
  1. AVONEX [Suspect]
     Indication: MULTIPLE SCLEROSIS
     Route: 030
     Dates: start: 20100519
  2. MEDICATION (NOS) [Concomitant]
     Indication: MULTIPLE SCLEROSIS

REACTIONS (4)
  - Blindness [Unknown]
  - Hypersensitivity [Unknown]
  - Influenza like illness [Unknown]
  - Drug ineffective [Unknown]
